FAERS Safety Report 14994978 (Version 2)
Quarter: 2018Q4

REPORT INFORMATION
  Report Type: Report from Study
  Country: None (occurrence: US)
  Receive Date: 20180611
  Receipt Date: 20181031
  Transmission Date: 20190204
  Serious: Yes (Other)
  Sender: FDA-Public Use
  Company Number: US-ABBVIE-18K-163-2342874-00

PATIENT
  Age: 55 Year
  Sex: Female

DRUGS (1)
  1. HUMIRA [Suspect]
     Active Substance: ADALIMUMAB
     Indication: COLITIS ULCERATIVE
     Route: 058

REACTIONS (26)
  - Arthritis [Unknown]
  - Musculoskeletal stiffness [Unknown]
  - Injection site warmth [Not Recovered/Not Resolved]
  - Drug ineffective [Recovering/Resolving]
  - Dyskinesia [Not Recovered/Not Resolved]
  - Haematochezia [Unknown]
  - Megacolon [Unknown]
  - Palpitations [Unknown]
  - Faeces discoloured [Unknown]
  - Injection site erythema [Not Recovered/Not Resolved]
  - Diarrhoea [Unknown]
  - Back pain [Unknown]
  - Sinusitis [Unknown]
  - Drug hypersensitivity [Recovering/Resolving]
  - Connective tissue disorder [Unknown]
  - Injection site discolouration [Unknown]
  - Colitis ulcerative [Unknown]
  - Injection site bruising [Not Recovered/Not Resolved]
  - Peripheral swelling [Not Recovered/Not Resolved]
  - Paraesthesia [Recovering/Resolving]
  - Fatigue [Unknown]
  - Injection site pain [Not Recovered/Not Resolved]
  - Breast pain [Recovering/Resolving]
  - Dehydration [Unknown]
  - Dyspnoea [Unknown]
  - Injection site pain [Unknown]

NARRATIVE: CASE EVENT DATE: 20171028
